FAERS Safety Report 6185158-9 (Version None)
Quarter: 2009Q2

REPORT INFORMATION
  Report Type: 
  Country: None (occurrence: None)
  Receive Date: 20090511
  Receipt Date: 20090428
  Transmission Date: 20091009
  Serious: Yes (Hospitalization, Other)
  Sender: FDA-Public Use
  Company Number: US-PFIZER INC-2009179163

PATIENT
  Sex: Male
  Weight: 29 kg

DRUGS (9)
  1. GEODON [Suspect]
     Indication: BIPOLAR DISORDER
     Dates: end: 20090201
  2. TRAZODONE [Concomitant]
     Dosage: UNK
  3. CITALOPRAM [Concomitant]
     Route: 048
     Dates: end: 20040723
  4. STRATTERA [Concomitant]
     Route: 048
  5. ABILIFY [Concomitant]
  6. ZOLOFT [Concomitant]
  7. PROZAC [Concomitant]
     Dosage: UNK
     Dates: start: 20060124
  8. LITHIUM CARBONATE [Concomitant]
  9. TYLENOL [Concomitant]

REACTIONS (5)
  - BIPOLAR DISORDER [None]
  - ELECTROCARDIOGRAM CHANGE [None]
  - ELECTROCARDIOGRAM QT PROLONGED [None]
  - INSOMNIA [None]
  - LEFT VENTRICULAR HYPERTROPHY [None]
